FAERS Safety Report 8310727-7 (Version None)
Quarter: 2012Q2

REPORT INFORMATION
  Report Type: 
  Country: None (occurrence: None)
  Receive Date: 20120425
  Receipt Date: 20120418
  Transmission Date: 20120825
  Serious: Yes (Hospitalization)
  Sender: FDA-Public Use
  Company Number: GB-ROCHE-1060694

PATIENT
  Sex: Female
  Weight: 85.4 kg

DRUGS (4)
  1. XELODA [Suspect]
     Indication: GASTRIC CANCER
     Dosage: LAST DOSE PRIOR TO SAE : 03-AUG-2011
     Route: 048
     Dates: start: 20101219
  2. CISPLATIN [Suspect]
     Indication: GASTRIC CANCER
     Dosage: LAST DOSE PRIOR TO SAE : 03-AUG-2011
     Route: 042
     Dates: start: 20101219
  3. EPIRUBICIN HYDROCHLORIDE [Suspect]
     Indication: GASTRIC CANCER
     Dosage: LAST DOSE PRIOR TO SAE : 03-AUG-2011
     Route: 042
     Dates: start: 20101219
  4. AVASTIN [Suspect]
     Indication: GASTRIC CANCER
     Dosage: LAST DOSE PRIOR TO SAE : 03-AUG-2011
     Route: 042
     Dates: start: 20101219

REACTIONS (1)
  - PULMONARY OEDEMA [None]
